FAERS Safety Report 16009375 (Version 1)
Quarter: 2019Q1

REPORT INFORMATION
  Report Type: Spontaneous
  Country: IT (occurrence: IT)
  Receive Date: 20190225
  Receipt Date: 20190225
  Transmission Date: 20190418
  Serious: Yes (Other)
  Sender: FDA-Public Use
  Company Number: PHHY2019IT042570

PATIENT
  Age: 5 Month
  Sex: Female

DRUGS (4)
  1. CARBOPLATIN. [Suspect]
     Active Substance: CARBOPLATIN
     Indication: OVARIAN CANCER
     Dosage: 600 MG, CYCLIC
     Route: 042
     Dates: start: 20180801
  2. CARBOPLATIN. [Suspect]
     Active Substance: CARBOPLATIN
     Dosage: 600 MG, CYCLIC
     Route: 042
     Dates: start: 20181101
  3. PACLITAXEL. [Suspect]
     Active Substance: PACLITAXEL
     Indication: OVARIAN CANCER
     Dosage: 290 MG, CYCLIC
     Route: 042
     Dates: start: 20180801
  4. PACLITAXEL. [Suspect]
     Active Substance: PACLITAXEL
     Dosage: 290 MG, CYCLIC
     Route: 042
     Dates: start: 20181101

REACTIONS (1)
  - Hair disorder [Recovered/Resolved]
